FAERS Safety Report 8507161 (Version 2)
Quarter: 2014Q1

REPORT INFORMATION
  Report Type: Spontaneous
  Country: US (occurrence: US)
  Receive Date: 20120412
  Receipt Date: 20140102
  Transmission Date: 20141002
  Serious: No
  Sender: FDA-Public Use
  Company Number: US-ASTRAZENECA-2012SE13129

PATIENT
  Age: 52 Year
  Sex: Male
  Weight: 92.5 kg

DRUGS (12)
  1. NEXIUM [Suspect]
     Indication: GASTROOESOPHAGEAL REFLUX DISEASE
     Route: 048
     Dates: start: 2010, end: 20131212
  2. LISINOPRIL [Suspect]
     Indication: HYPERTENSION
     Route: 048
     Dates: start: 2009
  3. SEROQUEL XR [Suspect]
     Indication: BIPOLAR DISORDER
     Route: 048
     Dates: start: 2009
  4. SEROQUEL XR [Suspect]
     Indication: SCHIZOPHRENIA
     Route: 048
     Dates: start: 2009
  5. VALPROIC ACID [Concomitant]
     Indication: POST-TRAUMATIC STRESS DISORDER
     Route: 048
     Dates: start: 2009
  6. VALPROIC ACID [Concomitant]
     Indication: POST-TRAUMATIC STRESS DISORDER
     Route: 048
     Dates: start: 2009
  7. HYDROXYZINE [Concomitant]
     Indication: ANXIETY
     Route: 048
     Dates: start: 2012
  8. PAROXETINE [Concomitant]
     Indication: NERVOUS SYSTEM DISORDER
     Route: 048
     Dates: start: 2009
  9. METFORMIN [Concomitant]
     Indication: DIABETES MELLITUS
     Route: 048
     Dates: start: 2012
  10. PROPRANOLOL [Concomitant]
     Indication: BLOOD PRESSURE ABNORMAL
     Route: 048
     Dates: start: 2010
  11. FLEXERIL [Concomitant]
     Indication: MYALGIA
     Route: 048
     Dates: start: 2006
  12. LORTAB [Concomitant]
     Indication: PAIN
     Route: 048
     Dates: start: 201310

REACTIONS (4)
  - Diabetes mellitus [Unknown]
  - Gastric disorder [Unknown]
  - Off label use [Unknown]
  - Drug dose omission [Not Recovered/Not Resolved]
